FAERS Safety Report 15190453 (Version 1)
Quarter: 2018Q3

REPORT INFORMATION
  Report Type: Spontaneous
  Country: US (occurrence: US)
  Receive Date: 20180724
  Receipt Date: 20180724
  Transmission Date: 20181010
  Serious: Yes (Hospitalization, Other)
  Sender: FDA-Public Use
  Company Number: US-SA-2018SA200280

PATIENT
  Age: 72 Year
  Sex: Female

DRUGS (5)
  1. PRALUENT [Suspect]
     Active Substance: ALIROCUMAB
     Indication: HYPERCHOLESTEROLAEMIA
     Dosage: 1 ML, QOW
     Route: 030
     Dates: start: 20160804
  2. PRASUGREL. [Concomitant]
     Active Substance: PRASUGREL
     Dosage: 10 MG
  3. CARVEDILOL. [Concomitant]
     Active Substance: CARVEDILOL
     Dosage: 3.125 MG
  4. ALIROCUMAB PREFILLED PEN [Suspect]
     Active Substance: ALIROCUMAB
     Indication: HYPERCHOLESTEROLAEMIA
     Dosage: 1 ML, QOW
     Route: 030
     Dates: start: 20160804
  5. LOSARTAN. [Concomitant]
     Active Substance: LOSARTAN
     Dosage: 25 MG, QD

REACTIONS (2)
  - Myocardial infarction [Unknown]
  - Product use issue [Unknown]

NARRATIVE: CASE EVENT DATE: 20180527
